FAERS Safety Report 21067016 (Version 1)
Quarter: 2022Q3

REPORT INFORMATION
  Report Type: Spontaneous
  Country: ZA (occurrence: ZA)
  Receive Date: 20220712
  Receipt Date: 20220712
  Transmission Date: 20221027
  Serious: Yes (Hospitalization, Other)
  Sender: FDA-Public Use
  Company Number: ZA-NOVARTISPH-NVSC2022ZA154260

PATIENT
  Age: 63 Year
  Sex: Male

DRUGS (1)
  1. BISOPROLOL [Suspect]
     Active Substance: BISOPROLOL
     Indication: Hypertension
     Dosage: 10 MG, QD
     Route: 065

REACTIONS (16)
  - Cardiac failure chronic [Unknown]
  - Ejection fraction decreased [Unknown]
  - Dyspnoea [Unknown]
  - Orthopnoea [Unknown]
  - Fatigue [Unknown]
  - Acute myocardial infarction [Unknown]
  - Cardiac failure congestive [Unknown]
  - COVID-19 [Unknown]
  - Acute kidney injury [Unknown]
  - Urinary tract infection [Unknown]
  - Hyperkalaemia [Unknown]
  - Pulmonary oedema [Unknown]
  - N-terminal prohormone brain natriuretic peptide increased [Unknown]
  - Oedema peripheral [Unknown]
  - Localised oedema [Unknown]
  - Glomerular filtration rate decreased [Unknown]

NARRATIVE: CASE EVENT DATE: 20220613
